FAERS Safety Report 18906946 (Version 3)
Quarter: 2021Q2

REPORT INFORMATION
  Report Type: Report from Study
  Country: LB (occurrence: LB)
  Receive Date: 20210217
  Receipt Date: 20210401
  Transmission Date: 20210717
  Serious: Yes (Other)
  Sender: FDA-Public Use
  Company Number: NVSC2020LB207459

PATIENT
  Age: 32 Year
  Sex: Female
  Weight: 56 kg

DRUGS (7)
  1. MULTI VITAMIN [Concomitant]
     Active Substance: VITAMINS
     Indication: FOETAL GROWTH ABNORMALITY
     Dosage: UNK UNK, UNKNOWN
     Route: 048
     Dates: start: 20200720, end: 20201218
  2. COSENTYX [Suspect]
     Active Substance: SECUKINUMAB
     Dosage: 300 MG, QMO
     Route: 058
     Dates: start: 202102
  3. BIOGEST [Concomitant]
     Indication: ANEMBRYONIC GESTATION
     Dosage: UNK UNK, UNKNOWN
     Route: 030
     Dates: start: 20200720, end: 20201218
  4. COSENTYX [Suspect]
     Active Substance: SECUKINUMAB
     Indication: PSORIASIS
     Dosage: 300 MG, QMO
     Route: 058
     Dates: start: 20181025, end: 20200623
  5. CALTRATE [Concomitant]
     Active Substance: CALCIUM CARBONATE
     Indication: PRODUCT USED FOR UNKNOWN INDICATION
     Dosage: UNK UNK, UNKNOWN
     Route: 048
     Dates: start: 20200720, end: 20201218
  6. FERRICURE [Concomitant]
     Active Substance: IRON
     Indication: PRODUCT USED FOR UNKNOWN INDICATION
     Dosage: UNK UNK, UNKNOWN
     Route: 048
     Dates: start: 20200720, end: 20201218
  7. DUFASTON [Concomitant]
     Active Substance: DYDROGESTERONE
     Indication: ANEMBRYONIC GESTATION
     Dosage: UNK UNK, UNKNOWN
     Route: 048
     Dates: start: 20200720, end: 20201218

REACTIONS (4)
  - Exposure during pregnancy [Recovered/Resolved]
  - Normal newborn [Unknown]
  - Haemorrhage [Recovered/Resolved]
  - Back pain [Recovered/Resolved]

NARRATIVE: CASE EVENT DATE: 20200620
